FAERS Safety Report 5960082-2 (Version None)
Quarter: 2008Q4

REPORT INFORMATION
  Report Type: 
  Country: None (occurrence: None)
  Receive Date: 20081119
  Receipt Date: 20081119
  Transmission Date: 20090506
  Serious: Yes (Life-Threatening)
  Sender: FDA-Public Use
  Company Number: None

PATIENT
  Age: 25 Year
  Sex: Male
  Weight: 81 kg

DRUGS (1)
  1. LEVOFLOX [Suspect]
     Indication: FEBRILE NEUTROPENIA
     Dosage: 750MG IV QD
     Route: 042
     Dates: start: 20081006, end: 20081007

REACTIONS (2)
  - ANGIOEDEMA [None]
  - APHASIA [None]
